FAERS Safety Report 23175499 (Version 4)
Quarter: 2023Q4

REPORT INFORMATION
  Report Type: Report from Study
  Country: CA (occurrence: CA)
  Receive Date: 20231113
  Receipt Date: 20231222
  Transmission Date: 20240109
  Serious: Yes (Other)
  Sender: FDA-Public Use
  Company Number: CA-BAYER-2023A159872

PATIENT
  Sex: Female

DRUGS (3)
  1. EYLEA [Suspect]
     Active Substance: AFLIBERCEPT
     Indication: Age-related macular degeneration
     Dosage: RIGHT EYE, SOLUTION FOR INJECTION, 40MG/ML
     Dates: start: 20230724
  2. EYLEA [Suspect]
     Active Substance: AFLIBERCEPT
     Dosage: RIGHT EYE, SOLUTION FOR INJECTION, 40MG/ML
     Dates: start: 20230821, end: 20230821
  3. EYLEA [Suspect]
     Active Substance: AFLIBERCEPT
     Dosage: RIGHT EYE, SOLUTION FOR INJECTION, 40MG/ML
     Dates: start: 20231003, end: 20231003

REACTIONS (6)
  - Visual impairment [Not Recovered/Not Resolved]
  - Non-proliferative retinopathy [Unknown]
  - Dry age-related macular degeneration [Unknown]
  - Neovascular age-related macular degeneration [Recovered/Resolved]
  - Night blindness [Not Recovered/Not Resolved]
  - Vitreous floaters [Recovered/Resolved]
